FAERS Safety Report 18958547 (Version 1)
Quarter: 2021Q1

REPORT INFORMATION
  Report Type: Spontaneous
  Country: US (occurrence: US)
  Receive Date: 20210302
  Receipt Date: 20210302
  Transmission Date: 20210420
  Serious: No
  Sender: FDA-Public Use
  Company Number: None

PATIENT
  Age: 45 Year
  Sex: Male

DRUGS (1)
  1. ROCEPHIN [Suspect]
     Active Substance: CEFTRIAXONE SODIUM
     Indication: BACTERAEMIA
     Route: 042
     Dates: start: 20210111, end: 20210111

REACTIONS (3)
  - Spider vein [None]
  - Injection site reaction [None]
  - Rash [None]

NARRATIVE: CASE EVENT DATE: 20210111
